FAERS Safety Report 4364771-5 (Version None)
Quarter: 2004Q2

REPORT INFORMATION
  Report Type: 
  Country: None (occurrence: None)
  Receive Date: 20040526
  Receipt Date: 20040517
  Transmission Date: 20050107
  Serious: Yes (Hospitalization)
  Sender: FDA-Public Use
  Company Number: PHEH2004US05453

PATIENT
  Age: 64 Year
  Sex: Male

DRUGS (2)
  1. LOPRESSOR [Suspect]
     Indication: HYPOTENSION
     Dosage: 50 MG, QD
     Route: 048
  2. LOPRESSOR [Suspect]
     Dosage: 25 MG, BID

REACTIONS (6)
  - CORONARY ARTERY SURGERY [None]
  - DIZZINESS [None]
  - DYSURIA [None]
  - LETHARGY [None]
  - MYOCARDIAL INFARCTION [None]
  - PROSTATIC SPECIFIC ANTIGEN INCREASED [None]
